FAERS Safety Report 23622317 (Version 5)
Quarter: 2024Q2

REPORT INFORMATION
  Report Type: Spontaneous
  Country: US (occurrence: US)
  Receive Date: 20240312
  Receipt Date: 20240501
  Transmission Date: 20240716
  Serious: No
  Sender: FDA-Public Use
  Company Number: US-PFIZER INC-202400049756

PATIENT
  Age: 13 Year
  Sex: Male
  Weight: 38.095 kg

DRUGS (2)
  1. GENOTROPIN [Suspect]
     Active Substance: SOMATROPIN
     Indication: Growth hormone deficiency
     Dosage: 24 MG, AT NIGHT
     Dates: start: 202306
  2. GENOTROPIN [Suspect]
     Active Substance: SOMATROPIN
     Dosage: 20 MG

REACTIONS (3)
  - Overdose [Unknown]
  - Product packaging quantity issue [Unknown]
  - Product reconstitution quality issue [Unknown]
